FAERS Safety Report 8947714 (Version 1)
Quarter: 2012Q4

REPORT INFORMATION
  Report Type: 
  Country: DE (occurrence: DE)
  Receive Date: 20121205
  Receipt Date: 20121205
  Transmission Date: 20130627
  Serious: Yes (Other)
  Sender: FDA-Public Use
  Company Number: GXKR2012DE003711

PATIENT
  Age: 77 Year
  Sex: Female

DRUGS (1)
  1. FOLIC ACID [Suspect]
     Indication: FOLATE DEFICIENCY
     Dosage: 5 mg, QD
     Route: 048
     Dates: start: 20120808

REACTIONS (7)
  - Anxiety [Recovered/Resolved]
  - Blood pressure decreased [Recovered/Resolved]
  - Palpitations [Recovered/Resolved]
  - Tremor [Recovered/Resolved]
  - Hyperhidrosis [Recovered/Resolved]
  - Malaise [Recovered/Resolved]
  - Nausea [Recovered/Resolved]
